FAERS Safety Report 19704151 (Version 2)
Quarter: 2021Q3

REPORT INFORMATION
  Report Type: Spontaneous
  Country: AU (occurrence: AU)
  Receive Date: 20210816
  Receipt Date: 20210917
  Transmission Date: 20211014
  Serious: Yes (Hospitalization, Other)
  Sender: FDA-Public Use
  Company Number: AU-GRANULES-AU-2021GRALIT00446

PATIENT
  Age: 29 Year
  Sex: Male

DRUGS (6)
  1. DIAZEPAM. [Interacting]
     Active Substance: DIAZEPAM
     Indication: SUPPORTIVE CARE
     Route: 048
  2. LAVANDULA ANGUSTIFOLIA WHOLE [Suspect]
     Active Substance: HERBALS\LAVANDULA ANGUSTIFOLIA WHOLE
     Indication: PRODUCT USED FOR UNKNOWN INDICATION
     Route: 065
  3. DIAZEPAM. [Interacting]
     Active Substance: DIAZEPAM
     Route: 048
  4. SERTRALINE HYDROCHLORIDE. [Suspect]
     Active Substance: SERTRALINE HYDROCHLORIDE
     Indication: ANXIETY
     Route: 065
  5. SYMBICORT [Concomitant]
     Active Substance: BUDESONIDE\FORMOTEROL FUMARATE DIHYDRATE
     Indication: ASTHMA
     Dosage: 200/6 MICRO G TWO PUFFS TWICE DAILY
     Route: 065
  6. CYPROHEPTADINE. [Interacting]
     Active Substance: CYPROHEPTADINE
     Indication: SUPPORTIVE CARE
     Route: 048

REACTIONS (2)
  - Serotonin syndrome [Recovered/Resolved]
  - Drug interaction [Recovered/Resolved]
